FAERS Safety Report 23922744 (Version 3)
Quarter: 2025Q4

REPORT INFORMATION
  Report Type: Report from Study
  Country: JP (occurrence: JP)
  Receive Date: 20240531
  Receipt Date: 20251203
  Transmission Date: 20260117
  Serious: Yes (Other)
  Sender: ROCHE
  Company Number: JP-ROCHE-3572975

PATIENT
  Age: 74 Year
  Sex: Female
  Weight: 60 kg

DRUGS (4)
  1. TECENTRIQ [Suspect]
     Active Substance: ATEZOLIZUMAB
     Indication: Triple negative breast cancer
     Route: 042
     Dates: start: 20240327
  2. PACLITAXEL [Suspect]
     Active Substance: PACLITAXEL
     Indication: Triple negative breast cancer
     Route: 042
     Dates: start: 20240327, end: 20240327
  3. PACLITAXEL [Suspect]
     Active Substance: PACLITAXEL
     Route: 042
     Dates: start: 20240424, end: 20240424
  4. PACLITAXEL [Suspect]
     Active Substance: PACLITAXEL
     Dosage: 50 MILLIGRAM/SQ. METER
     Route: 042
     Dates: start: 20240522, end: 20240717

REACTIONS (6)
  - Malaise [Recovered/Resolved]
  - Neutropenia [Recovered/Resolved]
  - Nail disorder [Recovered/Resolved]
  - Dysgeusia [Recovered/Resolved]
  - Neuropathy peripheral [Recovering/Resolving]
  - Dermatitis acneiform [Recovered/Resolved]

NARRATIVE: CASE EVENT DATE: 20240410
